FAERS Safety Report 26065781 (Version 1)
Quarter: 2025Q4

REPORT INFORMATION
  Report Type: Spontaneous
  Country: US (occurrence: US)
  Receive Date: 20251119
  Receipt Date: 20251119
  Transmission Date: 20260118
  Serious: Yes (Hospitalization, Other)
  Sender: NOVO NORDISK
  Company Number: US-NOVOPROD-1564596

PATIENT
  Age: 57 Year
  Sex: Male

DRUGS (1)
  1. NOVOLOG [Suspect]
     Active Substance: INSULIN ASPART
     Indication: Type 2 diabetes mellitus
     Dosage: 18 IU
     Route: 058

REACTIONS (5)
  - Renal impairment [Unknown]
  - Gallbladder disorder [Unknown]
  - Myocardial infarction [Recovered/Resolved]
  - Myocardial infarction [Recovered/Resolved]
  - Oxygen consumption decreased [Recovered/Resolved]

NARRATIVE: CASE EVENT DATE: 20140206
